FAERS Safety Report 7407293-7 (Version None)
Quarter: 2011Q2

REPORT INFORMATION
  Report Type: 
  Country: None (occurrence: None)
  Receive Date: 20110411
  Receipt Date: 20110330
  Transmission Date: 20111010
  Serious: Yes (Hospitalization, Other)
  Sender: FDA-Public Use
  Company Number: PHHY2011FR27308

PATIENT
  Sex: Male

DRUGS (7)
  1. AMLODIPINE BESYLATE [Concomitant]
     Dosage: 5 MG, QD
     Dates: start: 20090501
  2. HYDREA [Concomitant]
     Dosage: 500 MG, BID
     Dates: end: 20100517
  3. DEPAKENE [Suspect]
     Indication: EPILEPSY
     Dosage: 500 MG, BID
     Dates: start: 20100519, end: 20100528
  4. ZYLORIC [Concomitant]
     Dosage: 200 MG, DAILY
  5. URBANYL [Suspect]
     Dosage: 1 DF, QD
     Dates: start: 20100425, end: 20100515
  6. TAREG [Suspect]
     Dosage: 80 MG, QD
     Dates: start: 20100503, end: 20100530
  7. KEPPRA [Suspect]
     Dosage: 500 MG, TID
     Dates: start: 20100425, end: 20100525

REACTIONS (7)
  - AGGRESSION [None]
  - CREATININE RENAL CLEARANCE DECREASED [None]
  - DISORIENTATION [None]
  - CONFUSIONAL STATE [None]
  - DISTURBANCE IN ATTENTION [None]
  - ABNORMAL BEHAVIOUR [None]
  - HALLUCINATION [None]
